FAERS Safety Report 13672756 (Version 3)
Quarter: 2017Q4

REPORT INFORMATION
  Report Type: Spontaneous
  Country: US (occurrence: US)
  Receive Date: 20170621
  Receipt Date: 20171113
  Transmission Date: 20180320
  Serious: Yes (Other)
  Sender: FDA-Public Use
  Company Number: PHEH2017US018726

PATIENT
  Sex: Male
  Weight: 81.18 kg

DRUGS (1)
  1. RECLAST [Suspect]
     Active Substance: ZOLEDRONIC ACID
     Indication: OSTEOPOROSIS
     Dosage: UNK
     Route: 065
     Dates: start: 201010, end: 201107

REACTIONS (9)
  - Low turnover osteopathy [Unknown]
  - Mental disorder [Unknown]
  - Fear [Unknown]
  - Injury [Unknown]
  - Anhedonia [Unknown]
  - Anxiety [Unknown]
  - Pain [Unknown]
  - Femur fracture [Unknown]
  - Emotional distress [Unknown]
